FAERS Safety Report 7363163-4 (Version None)
Quarter: 2011Q1

REPORT INFORMATION
  Report Type: 
  Country: None (occurrence: None)
  Receive Date: 20110321
  Receipt Date: 20090316
  Transmission Date: 20110831
  Serious: Yes (Hospitalization, Other)
  Sender: FDA-Public Use
  Company Number: US-BAYER-200915593NA

PATIENT
  Sex: Female
  Weight: 83.447 kg

DRUGS (13)
  1. TRASYLOL [Suspect]
     Dosage: 50 ML, Q1HR, PUMP PRIME OF 200 ML
     Route: 041
     Dates: start: 20020708, end: 20020708
  2. LIPITOR [Concomitant]
     Indication: PRODUCT USED FOR UNKNOWN INDICATION
     Dosage: 20 MG, HS
     Route: 048
  3. ACETYLSALICYLIC ACID SRT [Concomitant]
     Indication: PRODUCT USED FOR UNKNOWN INDICATION
     Dosage: 325 MG, QD
     Route: 048
  4. IMDUR [Concomitant]
     Indication: PRODUCT USED FOR UNKNOWN INDICATION
     Dosage: 30 MG, QD
     Route: 048
  5. ATENOLOL [Concomitant]
     Indication: PRODUCT USED FOR UNKNOWN INDICATION
     Dosage: 12.5 MG, QD
     Route: 048
  6. BENADRYL [Concomitant]
     Dosage: 50 MG, UNK
     Route: 042
     Dates: start: 20020708, end: 20020708
  7. TRASYLOL [Suspect]
     Indication: CORONARY ARTERY BYPASS
     Dosage: 1 ML, TEST DOSE
     Route: 042
     Dates: start: 20020708, end: 20020708
  8. TRASYLOL [Suspect]
     Dosage: 200 ML, UNK
     Route: 042
     Dates: start: 20020708, end: 20020708
  9. GLUCOPHAGE [Concomitant]
     Indication: PRODUCT USED FOR UNKNOWN INDICATION
     Dosage: 2500 MG, QD
     Route: 048
  10. INSULIN [Concomitant]
     Dosage: 25 U, BID
     Route: 058
  11. ENALAPRIL [Concomitant]
     Indication: PRODUCT USED FOR UNKNOWN INDICATION
     Dosage: 20 MG, BID
     Route: 048
  12. HYDROCHLOROTHIAZIDE [Concomitant]
     Indication: PRODUCT USED FOR UNKNOWN INDICATION
     Dosage: QD
     Route: 048
  13. OPTIRAY 350 [Concomitant]
     Dosage: 86 ML, UNK
     Dates: start: 20020626, end: 20020626

REACTIONS (11)
  - CEREBROVASCULAR ACCIDENT [None]
  - RENAL FAILURE [None]
  - FEAR [None]
  - MENTAL DISORDER [None]
  - INJURY [None]
  - ANXIETY [None]
  - PAIN [None]
  - ANHEDONIA [None]
  - ADVERSE EVENT [None]
  - DEPRESSION [None]
  - EMOTIONAL DISTRESS [None]
